FAERS Safety Report 19328845 (Version 1)
Quarter: 2021Q2

REPORT INFORMATION
  Report Type: Spontaneous
  Country: US (occurrence: US)
  Receive Date: 20210529
  Receipt Date: 20210529
  Transmission Date: 20210717
  Serious: Yes (Other)
  Sender: FDA-Public Use
  Company Number: US-PURDUE-USA-2020-0212193

PATIENT
  Age: 49 Year
  Sex: Male

DRUGS (16)
  1. OXYCONTIN [Suspect]
     Active Substance: OXYCODONE HYDROCHLORIDE
     Indication: PAIN
     Dosage: UNKNOWN
     Route: 048
  2. OXYNEO [Suspect]
     Active Substance: OXYCODONE
     Dosage: 60 MG 1 TAB BID
     Route: 048
  3. GABAPENTIN. [Suspect]
     Active Substance: GABAPENTIN
     Indication: PAIN
     Dosage: 400 MG TID
     Route: 065
  4. OXYNEO [Suspect]
     Active Substance: OXYCODONE
     Indication: PAIN
     Dosage: 80 MG 1 TAB BID
     Route: 048
  5. OXYCODONE HCL CR TABLETS (SIMILAR TO NDA 22?272) [Suspect]
     Active Substance: OXYCODONE HYDROCHLORIDE
     Indication: BREAKTHROUGH PAIN
     Dosage: 80 MG 1 TAB TID
     Route: 048
  6. OXYCODONE HCL TABLETS (RHODES 91?490) [Suspect]
     Active Substance: OXYCODONE HYDROCHLORIDE
     Dosage: 10 MG BID
     Route: 048
  7. OXYCODONE HCL CR TABLETS (SIMILAR TO NDA 22?272) [Suspect]
     Active Substance: OXYCODONE HYDROCHLORIDE
     Dosage: 40 MG 1 TAB BID
     Route: 048
  8. OXYNEO [Suspect]
     Active Substance: OXYCODONE
     Dosage: 60 MG 1 TAB TID
     Route: 048
  9. OXY IR [Suspect]
     Active Substance: OXYCODONE HYDROCHLORIDE
     Indication: PAIN
     Dosage: UNK
     Route: 065
  10. OXYCODONE HCL TABLETS (RHODES 91?490) [Suspect]
     Active Substance: OXYCODONE HYDROCHLORIDE
     Indication: BREAKTHROUGH PAIN
     Dosage: 20 MG 4 TIMES DAILY
     Route: 048
  11. OXYCODONE HCL TABLETS (RHODES 91?490) [Suspect]
     Active Substance: OXYCODONE HYDROCHLORIDE
     Dosage: 5 MG BID
     Route: 048
  12. OXYCODONE HCL CR TABLETS (SIMILAR TO NDA 22?272) [Suspect]
     Active Substance: OXYCODONE HYDROCHLORIDE
     Dosage: 40 MG 1 TAB TID
     Route: 048
  13. OXYNEO [Suspect]
     Active Substance: OXYCODONE
     Dosage: 80 MG 1 TAB TID
     Route: 048
  14. OXYCODONE HCL TABLETS (RHODES 91?490) [Suspect]
     Active Substance: OXYCODONE HYDROCHLORIDE
     Dosage: 20 MG TID
     Route: 048
  15. OXYCODONE HCL TABLETS (RHODES 91?490) [Suspect]
     Active Substance: OXYCODONE HYDROCHLORIDE
     Dosage: 10 MG 4 TIMES DAILY
     Route: 048
  16. ZOPICLONE [Suspect]
     Active Substance: ZOPICLONE
     Indication: INSOMNIA
     Dosage: 7.5 MG
     Route: 065

REACTIONS (2)
  - Stress [Unknown]
  - Drug dependence [Unknown]
